FAERS Safety Report 5219566-7 (Version None)
Quarter: 2007Q1

REPORT INFORMATION
  Report Type: 
  Country: None (occurrence: None)
  Receive Date: 20070125
  Receipt Date: 20070115
  Transmission Date: 20070707
  Serious: Yes (Hospitalization)
  Sender: FDA-Public Use
  Company Number: JP-PFIZER INC-2007003248

PATIENT
  Age: 63 Year
  Sex: Male

DRUGS (3)
  1. ATORVASTATIN CALCIUM [Suspect]
     Indication: HYPERLIPIDAEMIA
     Dosage: DAILY DOSE:10MG
     Route: 048
     Dates: start: 20061206, end: 20070109
  2. SALOBEL [Concomitant]
     Route: 048
  3. ETHYL ICOSAPENTATE [Concomitant]
     Route: 048
     Dates: end: 20070109

REACTIONS (1)
  - HEPATITIS FULMINANT [None]
